FAERS Safety Report 26043151 (Version 1)
Quarter: 2025Q4

REPORT INFORMATION
  Report Type: Spontaneous
  Country: US (occurrence: US)
  Receive Date: 20251113
  Receipt Date: 20251113
  Transmission Date: 20260118
  Serious: Yes (Hospitalization)
  Sender: AMARIN PHARMA, INC.
  Company Number: US-Amarin Pharma  Inc-2025AMR000677

PATIENT
  Age: 59 Year
  Sex: Female

DRUGS (1)
  1. VASCEPA [Suspect]
     Active Substance: ICOSAPENT ETHYL
     Indication: Blood cholesterol

REACTIONS (12)
  - COVID-19 [Unknown]
  - Retching [Unknown]
  - Dysphagia [Unknown]
  - Vomiting [Unknown]
  - Anosmia [Unknown]
  - Ageusia [Unknown]
  - Brain fog [Unknown]
  - Foreign body in throat [Unknown]
  - Poor quality product administered [Unknown]
  - Wrong technique in product usage process [Unknown]
  - Product dispensing error [Unknown]
  - Product physical issue [Unknown]

NARRATIVE: CASE EVENT DATE: 20250101
